FAERS Safety Report 23067011 (Version 1)
Quarter: 2023Q4

REPORT INFORMATION
  Report Type: Spontaneous
  Country: US (occurrence: US)
  Receive Date: 20231016
  Receipt Date: 20231016
  Transmission Date: 20240109
  Serious: No
  Sender: FDA-Public Use
  Company Number: US-SA-SAC20231013000434

PATIENT
  Age: 32 Year
  Sex: Female

DRUGS (1)
  1. REZUROCK [Suspect]
     Active Substance: BELUMOSUDIL
     Indication: Chronic graft versus host disease
     Dosage: 200 MG, QD
     Route: 048
     Dates: start: 20230914

REACTIONS (5)
  - Growing pains [Unknown]
  - Bone pain [Unknown]
  - Nasopharyngitis [Unknown]
  - Myalgia [Unknown]
  - Fatigue [Recovered/Resolved]
